FAERS Safety Report 4429926-X (Version None)
Quarter: 2004Q3

REPORT INFORMATION
  Report Type: 
  Country: None (occurrence: None)
  Receive Date: 20040817
  Receipt Date: 20040817
  Transmission Date: 20050211
  Serious: Yes (Hospitalization)
  Sender: FDA-Public Use
  Company Number: None

PATIENT
  Age: 82 Year
  Sex: Male
  Weight: 98.8842 kg

DRUGS (14)
  1. ZOLADEX [Suspect]
     Indication: PROSTATE CANCER
     Dosage: 3.6 MG SQ
     Route: 058
     Dates: start: 20040429, end: 20040722
  2. CASODEX [Suspect]
     Indication: PROSTATE CANCER
     Dosage: 50 MG PO DAILY
     Route: 048
     Dates: start: 20040429, end: 20040816
  3. LASIX [Concomitant]
  4. ASPIRIN [Concomitant]
  5. ENALAPRIL [Concomitant]
  6. NEURONTIN [Concomitant]
  7. BEXTRA [Concomitant]
  8. SINEMET [Concomitant]
  9. CELEXA [Concomitant]
  10. NEXIUM [Concomitant]
  11. PLAVIX [Concomitant]
  12. RISPERDAL [Concomitant]
  13. DITROPIN [Concomitant]
  14. NAMENDA [Concomitant]

REACTIONS (5)
  - DIZZINESS [None]
  - FALL [None]
  - HEMIPARESIS [None]
  - JOINT INJURY [None]
  - MEMORY IMPAIRMENT [None]
